FAERS Safety Report 11636951 (Version 7)
Quarter: 2017Q1

REPORT INFORMATION
  Report Type: Spontaneous
  Country: CA (occurrence: CA)
  Receive Date: 20151016
  Receipt Date: 20170112
  Transmission Date: 20170428
  Serious: Yes (Other)
  Sender: FDA-Public Use
  Company Number: CA-PFIZER INC-2015341224

PATIENT
  Age: 60 Year
  Sex: Female

DRUGS (8)
  1. ENBREL [Suspect]
     Active Substance: ETANERCEPT
     Indication: RHEUMATOID ARTHRITIS
     Dosage: UNK
     Route: 065
     Dates: start: 2002, end: 2013
  2. METHOTREXATE SODIUM. [Suspect]
     Active Substance: METHOTREXATE SODIUM
     Indication: RHEUMATOID ARTHRITIS
     Dosage: 20 MG, QWK
     Route: 048
  3. PREDNISONE. [Suspect]
     Active Substance: PREDNISONE
     Indication: RHEUMATOID ARTHRITIS
     Dosage: UNK
     Route: 065
  4. MOBICOX [Suspect]
     Active Substance: MELOXICAM
     Dosage: UNK
     Route: 065
  5. DICLOFENAC [Suspect]
     Active Substance: DICLOFENAC
     Dosage: UNK
     Route: 065
  6. ARTHROTEC [Suspect]
     Active Substance: DICLOFENAC SODIUM\MISOPROSTOL
     Dosage: UNK
     Route: 065
  7. CYTOTEC [Suspect]
     Active Substance: MISOPROSTOL
     Dosage: UNK
     Route: 065
  8. ORENCIA [Suspect]
     Active Substance: ABATACEPT
     Indication: RHEUMATOID ARTHRITIS
     Dosage: UNK
     Route: 058
     Dates: start: 201305

REACTIONS (11)
  - Abdominal discomfort [Unknown]
  - Pruritus [Unknown]
  - Mass [Unknown]
  - Arthropathy [Unknown]
  - Condition aggravated [Unknown]
  - Joint swelling [Unknown]
  - Diabetes mellitus [Unknown]
  - Drug hypersensitivity [Unknown]
  - Headache [Unknown]
  - Drug ineffective [Unknown]
  - Treatment failure [Unknown]
